FAERS Safety Report 6443770-3 (Version None)
Quarter: 2009Q4

REPORT INFORMATION
  Report Type: 
  Country: None (occurrence: None)
  Receive Date: 20091117
  Receipt Date: 20091103
  Transmission Date: 20100525
  Serious: Yes (Hospitalization)
  Sender: FDA-Public Use
  Company Number: DE-MYLANLABS-2009S1004381

PATIENT
  Age: 69 Year
  Sex: Male

DRUGS (4)
  1. RAMIPRIL [Interacting]
     Indication: HYPERTENSION
     Route: 048
     Dates: end: 20090218
  2. TAMSULOSIN [Interacting]
     Indication: BENIGN PROSTATIC HYPERPLASIA
     Route: 048
  3. BISOPROLOL [Suspect]
     Indication: HYPERTENSION
     Route: 048
     Dates: end: 20090212
  4. VIAGRA [Interacting]
     Indication: ERECTILE DYSFUNCTION
     Route: 048
     Dates: start: 20090207, end: 20090207

REACTIONS (2)
  - DRUG INTERACTION [None]
  - PRESYNCOPE [None]
